FAERS Safety Report 4286676-0 (Version None)
Quarter: 2004Q1

REPORT INFORMATION
  Report Type: 
  Country: None (occurrence: None)
  Receive Date: 20040204
  Receipt Date: 20040129
  Transmission Date: 20041129
  Serious: Yes (Disabling)
  Sender: FDA-Public Use
  Company Number: HQWYE484320JAN04

PATIENT
  Age: 49 Year
  Sex: Female

DRUGS (2)
  1. PREMARIN [Suspect]
     Indication: HORMONE REPLACEMENT THERAPY
     Dosage: ORAL               FOR YEARS
     Route: 048
  2. PROVERA [Suspect]
     Indication: HORMONE REPLACEMENT THERAPY
     Dosage: ORAL               FOR YEARS
     Route: 048

REACTIONS (15)
  - AMNESIA [None]
  - BLINDNESS UNILATERAL [None]
  - CEREBRAL THROMBOSIS [None]
  - DIZZINESS [None]
  - EYE HAEMORRHAGE [None]
  - EYE PAIN [None]
  - FALL [None]
  - GLAUCOMA [None]
  - HEADACHE [None]
  - MIGRAINE [None]
  - OEDEMA PERIPHERAL [None]
  - PAIN IN EXTREMITY [None]
  - RETINAL VEIN OCCLUSION [None]
  - SYNCOPE [None]
  - VISUAL DISTURBANCE [None]
